FAERS Safety Report 10070537 (Version 6)
Quarter: 2015Q2

REPORT INFORMATION
  Report Type: Spontaneous
  Country: US (occurrence: US)
  Receive Date: 20140410
  Receipt Date: 20150526
  Transmission Date: 20150821
  Serious: Yes (Death, Hospitalization, Disabling, Other)
  Sender: FDA-Public Use
  Company Number: US-MERCK-1404USA005438

PATIENT
  Sex: Male
  Weight: 111.57 kg

DRUGS (2)
  1. JANUVIA [Suspect]
     Active Substance: SITAGLIPTIN PHOSPHATE
     Dosage: 100 MG, QD
     Route: 048
     Dates: end: 20120625
  2. JANUVIA [Suspect]
     Active Substance: SITAGLIPTIN PHOSPHATE
     Indication: TYPE 2 DIABETES MELLITUS
     Dosage: 50 MG, QD
     Route: 048
     Dates: start: 20061127, end: 20080919

REACTIONS (42)
  - Arrhythmia [Unknown]
  - Coagulopathy [Unknown]
  - Pancreatitis [Unknown]
  - Abnormal loss of weight [Not Recovered/Not Resolved]
  - Prostatomegaly [Unknown]
  - Extrasystoles [Unknown]
  - Gastrooesophageal reflux disease [Unknown]
  - Cellulitis [Unknown]
  - Diabetes mellitus inadequate control [Unknown]
  - Abdominal pain [Unknown]
  - Heart rate irregular [Unknown]
  - Gravitational oedema [Unknown]
  - Blood glucose increased [Unknown]
  - Injury [Unknown]
  - Death [Fatal]
  - Pancreatitis acute [Unknown]
  - Hypotension [Recovered/Resolved]
  - Hepatic lesion [Unknown]
  - Neoplasm [Unknown]
  - Dysphonia [Unknown]
  - Asthma [Unknown]
  - Pancreatic carcinoma [Unknown]
  - Left ventricular dysfunction [Unknown]
  - Skin discolouration [Unknown]
  - Pleural effusion [Unknown]
  - Basal cell carcinoma [Unknown]
  - Acute kidney injury [Unknown]
  - Supraventricular extrasystoles [Unknown]
  - Cardiac failure congestive [Unknown]
  - Large intestine polyp [Unknown]
  - Pancreatectomy [Unknown]
  - Myocardial infarction [Unknown]
  - Chronic kidney disease [Not Recovered/Not Resolved]
  - Cholelithiasis [Unknown]
  - Pulmonary hypertension [Unknown]
  - Cataract operation [Unknown]
  - Cardiac valve disease [Unknown]
  - Heart valve replacement [Unknown]
  - Pancreatic disorder [Unknown]
  - Haematuria [Unknown]
  - Headache [Unknown]
  - Abdominal pain [Unknown]

NARRATIVE: CASE EVENT DATE: 2006
